FAERS Safety Report 23750589 (Version 5)
Quarter: 2025Q2

REPORT INFORMATION
  Report Type: Report from Study
  Country: CA (occurrence: CA)
  Receive Date: 20240417
  Receipt Date: 20250625
  Transmission Date: 20250717
  Serious: Yes (Hospitalization, Other)
  Sender: TAKEDA
  Company Number: CA-TAKEDA-2022TUS012911

PATIENT
  Sex: Male
  Weight: 39 kg

DRUGS (8)
  1. TEDUGLUTIDE [Suspect]
     Active Substance: TEDUGLUTIDE
     Indication: Short-bowel syndrome
     Dosage: 1.85 MILLIGRAM, QD
     Dates: start: 20220221
  2. TEDUGLUTIDE [Suspect]
     Active Substance: TEDUGLUTIDE
     Dosage: 2 MILLIGRAM, QD
  3. TEDUGLUTIDE [Suspect]
     Active Substance: TEDUGLUTIDE
     Dosage: 2 MILLIGRAM, QD
  4. TEDUGLUTIDE [Suspect]
     Active Substance: TEDUGLUTIDE
     Dosage: 2.5 MILLIGRAM, QD
  5. TEDUGLUTIDE [Suspect]
     Active Substance: TEDUGLUTIDE
     Dosage: UNK UNK, QD
  6. IMODIUM [Concomitant]
     Active Substance: LOPERAMIDE HYDROCHLORIDE
     Dosage: 6 MILLIGRAM, TID
  7. CIPRO [Concomitant]
     Active Substance: CIPROFLOXACIN HYDROCHLORIDE
     Dosage: 4 MILLIGRAM, BID
  8. VITAMIN D NOS [Concomitant]
     Active Substance: CHOLECALCIFEROL\ERGOCALCIFEROL
     Dosage: 10000 INTERNATIONAL UNIT, 1/WEEK

REACTIONS (24)
  - Pneumonia [Unknown]
  - Obstruction [Recovered/Resolved]
  - Faeces discoloured [Unknown]
  - Weight decreased [Recovered/Resolved]
  - Fatigue [Not Recovered/Not Resolved]
  - Weight fluctuation [Not Recovered/Not Resolved]
  - Infrequent bowel movements [Recovering/Resolving]
  - Abnormal faeces [Recovering/Resolving]
  - Pain [Unknown]
  - Swelling face [Unknown]
  - Hunger [Recovering/Resolving]
  - Urine output increased [Recovering/Resolving]
  - Nocturia [Unknown]
  - Device occlusion [Recovered/Resolved]
  - Body height increased [Recovering/Resolving]
  - Weight increased [Unknown]
  - Constipation [Unknown]
  - Illness [Recovered/Resolved]
  - Appetite disorder [Unknown]
  - Abdominal pain [Recovering/Resolving]
  - Product dose omission in error [Unknown]
  - Product dose omission issue [Recovering/Resolving]
  - Diarrhoea [Recovering/Resolving]
  - Abdominal pain upper [Unknown]

NARRATIVE: CASE EVENT DATE: 20220101
